FAERS Safety Report 20291969 (Version 3)
Quarter: 2022Q1

REPORT INFORMATION
  Report Type: Spontaneous
  Country: US (occurrence: US)
  Receive Date: 20220104
  Receipt Date: 20220314
  Transmission Date: 20220423
  Serious: No
  Sender: FDA-Public Use
  Company Number: US-PFIZER INC-202101742132

PATIENT
  Age: 22 Year
  Sex: Male
  Weight: 106.59 kg

DRUGS (3)
  1. GENOTROPIN [Suspect]
     Active Substance: SOMATROPIN
     Indication: Hypopituitarism
     Dosage: 1.4 MG, DAILY (INJECTION)
     Dates: start: 201703
  2. GENOTROPIN [Suspect]
     Active Substance: SOMATROPIN
     Dosage: 2 MG, DAILY
     Dates: start: 20170324
  3. TESTOSTERONE [Concomitant]
     Active Substance: TESTOSTERONE
     Dosage: 80 MG, WEEKLY (ONCE A WEEK)

REACTIONS (4)
  - Full blood count increased [Unknown]
  - Drug dose omission by device [Unknown]
  - Device use issue [Unknown]
  - Device power source issue [Unknown]

NARRATIVE: CASE EVENT DATE: 20211204
